FAERS Safety Report 24731602 (Version 1)
Quarter: 2024Q4

REPORT INFORMATION
  Report Type: Spontaneous
  Country: IT (occurrence: IT)
  Receive Date: 20241213
  Receipt Date: 20241213
  Transmission Date: 20250115
  Serious: Yes (Hospitalization)
  Sender: INTERCHEM
  Company Number: IT-HQ SPECIALTY-IT-2024INT000111

PATIENT
  Age: 14 Year
  Sex: Female

DRUGS (2)
  1. DEXMEDETOMIDINE HYDROCHLORIDE [Suspect]
     Active Substance: DEXMEDETOMIDINE HYDROCHLORIDE
     Indication: Sedation
     Dosage: UNK UNK, UNK
     Route: 065
     Dates: start: 20240312, end: 20240312
  2. METHOTREXATE [Concomitant]
     Active Substance: METHOTREXATE
     Indication: Acute lymphocytic leukaemia
     Dosage: 12 MG, UNK
     Route: 065

REACTIONS (4)
  - Apnoea [Recovered/Resolved]
  - Off label use [Recovered/Resolved]
  - Delayed recovery from anaesthesia [Recovered/Resolved]
  - Agitation [Recovered/Resolved]

NARRATIVE: CASE EVENT DATE: 20240312
